FAERS Safety Report 14829918 (Version 1)
Quarter: 2018Q2

REPORT INFORMATION
  Report Type: Spontaneous
  Country: GB (occurrence: GB)
  Receive Date: 20180430
  Receipt Date: 20180430
  Transmission Date: 20180711
  Serious: Yes (Other)
  Sender: FDA-Public Use
  Company Number: GB-PFIZER INC-2018171779

PATIENT
  Age: 28 Year
  Sex: Female
  Weight: 60 kg

DRUGS (5)
  1. ESOMEPRAZOLE [Concomitant]
     Active Substance: ESOMEPRAZOLE
     Dosage: UNK
  2. LEVETIRACETAM. [Suspect]
     Active Substance: LEVETIRACETAM
     Dosage: 500 MG, DAILY (250MG MORNING AND NIGHT)
     Route: 048
     Dates: start: 20180309, end: 20180315
  3. CILEST [Concomitant]
     Active Substance: ETHINYL ESTRADIOL\NORGESTIMATE
     Dosage: UNK
  4. LIZINNA [Concomitant]
     Dosage: UNK
  5. LEVETIRACETAM. [Suspect]
     Active Substance: LEVETIRACETAM
     Dosage: 250 MG, 1X/DAY (AT NIGHT)
     Route: 048
     Dates: start: 20180228

REACTIONS (12)
  - Mood swings [Unknown]
  - Anger [Unknown]
  - Somnolence [Unknown]
  - Muscular weakness [Unknown]
  - Restless legs syndrome [Recovered/Resolved]
  - Hypermobility syndrome [Unknown]
  - Feeling drunk [Unknown]
  - Joint laxity [Unknown]
  - Dizziness [Unknown]
  - Oropharyngeal pain [Unknown]
  - Suicidal ideation [Unknown]
  - Condition aggravated [Unknown]

NARRATIVE: CASE EVENT DATE: 20180228
